FAERS Safety Report 8356480-2 (Version None)
Quarter: 2012Q2

REPORT INFORMATION
  Report Type: 
  Country: None (occurrence: None)
  Receive Date: 20120514
  Receipt Date: 20120509
  Transmission Date: 20120825
  Serious: No
  Sender: FDA-Public Use
  Company Number: US-BAYER-2012-045868

PATIENT
  Sex: Female

DRUGS (2)
  1. BEYAZ [Suspect]
     Indication: CONTRACEPTION
     Dosage: UNK
     Route: 048
  2. BEYAZ [Suspect]
     Indication: MENSTRUAL DISORDER

REACTIONS (2)
  - AMENORRHOEA [None]
  - NO ADVERSE EVENT [None]
